FAERS Safety Report 11608612 (Version 1)
Quarter: 2015Q4

REPORT INFORMATION
  Report Type: Spontaneous
  Country: AT (occurrence: AT)
  Receive Date: 20151007
  Receipt Date: 20151007
  Transmission Date: 20160304
  Serious: Yes (Hospitalization)
  Sender: FDA-Public Use
  Company Number: AT-ABBVIE-15P-009-1346483-00

PATIENT
  Sex: Female

DRUGS (2)
  1. EXVIERA [Suspect]
     Active Substance: DASABUVIR
     Indication: HEPATITIS C
     Route: 048
     Dates: start: 20150204, end: 20150430
  2. VIEKIRAX [Suspect]
     Active Substance: OMBITASVIR\PARITAPREVIR\RITONAVIR
     Indication: HEPATITIS C
     Route: 048
     Dates: start: 20150204, end: 20150430

REACTIONS (49)
  - Headache [Not Recovered/Not Resolved]
  - Medication error [Recovered/Resolved]
  - Pulpitis dental [Unknown]
  - Fatigue [Unknown]
  - Sleep disorder [Unknown]
  - Feeling abnormal [Unknown]
  - Zinc deficiency [Unknown]
  - Delirium [Unknown]
  - Dry skin [Unknown]
  - Nausea [Unknown]
  - Vertigo [Unknown]
  - Diarrhoea [Recovered/Resolved]
  - Oropharyngeal pain [Unknown]
  - Diarrhoea [Unknown]
  - Red blood cell sedimentation rate increased [Unknown]
  - Back pain [Unknown]
  - Nausea [Unknown]
  - Asthenia [Unknown]
  - Asthenia [Unknown]
  - Hyperhidrosis [Unknown]
  - Headache [Unknown]
  - Pain in extremity [Unknown]
  - Noninfective gingivitis [Unknown]
  - Pneumonia [Unknown]
  - Meningitis viral [Not Recovered/Not Resolved]
  - Balance disorder [Recovered/Resolved]
  - Disturbance in attention [Unknown]
  - Somnolence [Unknown]
  - Vitamin C deficiency [Unknown]
  - Pruritus [Unknown]
  - Decreased appetite [Unknown]
  - Head discomfort [Recovered/Resolved]
  - Malaise [Unknown]
  - Vitamin D deficiency [Unknown]
  - Insomnia [Unknown]
  - Biliary colic [Unknown]
  - Cholelithiasis [Unknown]
  - Memory impairment [Unknown]
  - Vertigo [Recovered/Resolved]
  - Cold sweat [Unknown]
  - Dysstasia [Unknown]
  - Muscle spasms [Unknown]
  - Depressed level of consciousness [Unknown]
  - Feeling abnormal [Unknown]
  - Nasopharyngitis [Unknown]
  - Dizziness [Unknown]
  - Panic attack [Unknown]
  - Vitamin B complex deficiency [Unknown]
  - Weight decreased [Unknown]

NARRATIVE: CASE EVENT DATE: 20150204
